FAERS Safety Report 12191739 (Version 1)
Quarter: 2016Q1

REPORT INFORMATION
  Report Type: Spontaneous
  Country: US (occurrence: US)
  Receive Date: 20160318
  Receipt Date: 20160318
  Transmission Date: 20160526
  Serious: No
  Sender: FDA-Public Use
  Company Number: US-PFIZER INC-2016113202

PATIENT
  Age: 62 Year
  Sex: Female

DRUGS (5)
  1. EFFEXOR [Suspect]
     Active Substance: VENLAFAXINE HYDROCHLORIDE
     Dosage: UNK
     Dates: end: 20151208
  2. ABILIFY [Suspect]
     Active Substance: ARIPIPRAZOLE
     Dosage: 2.5 MG, DAILY (SPLIT THE ABILIFY HALF TABLETS IN HALF)
  3. WELLBUTRIN [Suspect]
     Active Substance: BUPROPION HYDROCHLORIDE
     Dosage: UNK
  4. GABAPENTIN. [Concomitant]
     Active Substance: GABAPENTIN
     Dosage: 300 MG, UNK
  5. ABILIFY [Suspect]
     Active Substance: ARIPIPRAZOLE
     Dosage: 5 MG, DAILY (SPLIT HER 10MG TABLETS IN HALF AND TAKE 5MG AS A HALF TABLET DAILY)
     Route: 048
     Dates: start: 20151107

REACTIONS (4)
  - Sleep disorder [Recovering/Resolving]
  - Drug prescribing error [Not Recovered/Not Resolved]
  - Crying [Recovered/Resolved]
  - Drooling [Not Recovered/Not Resolved]
